FAERS Safety Report 8571486-6 (Version None)
Quarter: 2012Q3

REPORT INFORMATION
  Report Type: 
  Country: None (occurrence: None)
  Receive Date: 20120806
  Receipt Date: 20120726
  Transmission Date: 20120928
  Serious: No
  Sender: FDA-Public Use
  Company Number: US-BAYER-2012-076568

PATIENT

DRUGS (3)
  1. IBUPROFEN [Concomitant]
     Dosage: 1 DF, UNK
  2. ALEVE (CAPLET) [Suspect]
     Indication: DYSMENORRHOEA
     Dosage: 4 DF, UNK
     Route: 048
  3. LORTAB [Concomitant]
     Dosage: 3 DF, UNK

REACTIONS (1)
  - DYSMENORRHOEA [None]
